FAERS Safety Report 17855171 (Version 1)
Quarter: 2020Q2

REPORT INFORMATION
  Report Type: Report from Study
  Country: CA (occurrence: CA)
  Receive Date: 20200603
  Receipt Date: 20200603
  Transmission Date: 20200714
  Serious: No
  Sender: FDA-Public Use
  Company Number: CA-JNJFOC-20200526072

PATIENT
  Sex: Female
  Weight: 87 kg

DRUGS (1)
  1. REMICADE [Suspect]
     Active Substance: INFLIXIMAB
     Indication: COLITIS ULCERATIVE
     Route: 042
     Dates: start: 20191213

REACTIONS (6)
  - Dyspnoea [Unknown]
  - Dehydration [Not Recovered/Not Resolved]
  - Cystitis [Unknown]
  - Myalgia [Unknown]
  - Weight decreased [Unknown]
  - Lymphadenectomy [Unknown]

NARRATIVE: CASE EVENT DATE: 2020
